FAERS Safety Report 6107961-3 (Version None)
Quarter: 2009Q1

REPORT INFORMATION
  Report Type: 
  Country: None (occurrence: None)
  Receive Date: 20090309
  Receipt Date: 20090206
  Transmission Date: 20090719
  Serious: No
  Sender: FDA-Public Use
  Company Number: US-BAYER-200814134BCC

PATIENT
  Age: 71 Year
  Sex: Female
  Weight: 75 kg

DRUGS (4)
  1. ALEVE (CAPLET) [Suspect]
     Indication: ARTHRALGIA
     Dosage: UNIT DOSE: 220 MG
     Dates: start: 20081013, end: 20081017
  2. CALTRATE [Concomitant]
  3. FISH OIL [Concomitant]
  4. CENTRUM [Concomitant]

REACTIONS (1)
  - JOINT SWELLING [None]
